FAERS Safety Report 14851281 (Version 1)
Quarter: 2018Q2

REPORT INFORMATION
  Report Type: Spontaneous
  Country: JP (occurrence: JP)
  Receive Date: 20180507
  Receipt Date: 20180507
  Transmission Date: 20180711
  Serious: Yes (Hospitalization)
  Sender: FDA-Public Use
  Company Number: JP-ROCHE-2117921

PATIENT
  Age: 73 Year
  Sex: Male
  Weight: 56 kg

DRUGS (8)
  1. GRANISETRON [Concomitant]
     Active Substance: GRANISETRON
     Dosage: DOSE INTERVAL UNCERTAINTY
     Route: 041
     Dates: start: 20171218, end: 20180226
  2. DEXART [Concomitant]
     Active Substance: DEXAMETHASONE SODIUM PHOSPHATE
     Dosage: DOSE INTERVAL UNCERTAINTY
     Route: 041
     Dates: start: 20171218, end: 20180226
  3. PYDOXAL [Concomitant]
     Active Substance: PYRIDOXAL
     Dosage: DOSAGE IS UNCERTAIN.
     Route: 048
     Dates: start: 20171218, end: 20180311
  4. ELPLAT [Concomitant]
     Active Substance: OXALIPLATIN
     Indication: RECTAL CANCER
     Route: 041
  5. RESTAMIN [Concomitant]
     Active Substance: DIPHENHYDRAMINE
     Dosage: DOSAGE IS UNCERTAIN.
     Route: 048
     Dates: start: 20171218, end: 20180226
  6. XELODA [Suspect]
     Active Substance: CAPECITABINE
     Indication: RECTAL CANCER
     Dosage: 1800MG IN MORNING AND 1500MG AT NIGHT?2 WEEKS ADMINISTRATION FOLLOWED BY 1 WEEK REST
     Route: 048
     Dates: start: 20171218, end: 20180311
  7. AVASTIN [Suspect]
     Active Substance: BEVACIZUMAB
     Indication: RECTAL CANCER
     Dosage: MOST RECENT DOSE:26/FEB/2018
     Route: 041
     Dates: start: 20171218
  8. HIRUDOID (JAPAN) [Concomitant]
     Dosage: DOSAGE IS UNCERTAIN.
     Route: 003
     Dates: start: 20171218, end: 20180311

REACTIONS (1)
  - Diabetic ketoacidosis [Recovering/Resolving]

NARRATIVE: CASE EVENT DATE: 20180310
